FAERS Safety Report 6012438-X (Version None)
Quarter: 2008Q4

REPORT INFORMATION
  Report Type: 
  Country: None (occurrence: None)
  Receive Date: 20081218
  Receipt Date: 20081209
  Transmission Date: 20090506
  Serious: Yes (Other)
  Sender: FDA-Public Use
  Company Number: US-ELI_LILLY_AND_COMPANY-US200811003369

PATIENT
  Sex: Female
  Weight: 63.039 kg

DRUGS (11)
  1. FORTEO [Suspect]
     Indication: OSTEOPOROSIS
     Dosage: 20 UG, DAILY (1/D)
     Dates: start: 20070701
  2. NORVASC [Concomitant]
     Dosage: 5 MG, UNK
  3. SIMVASTATIN [Concomitant]
     Dosage: 40 MG, UNK
  4. LEVOTHYROXINE SODIUM [Concomitant]
     Dosage: 50 MG, UNK
  5. OXYBUTYNIN CHLORIDE [Concomitant]
     Dosage: 10 MG, UNK
  6. HYDROCHLOROTHIAZIDE [Concomitant]
     Dosage: 25 MG, UNK
  7. METOPROLOL TARTRATE [Concomitant]
     Dosage: 25 MG, UNK
  8. WARFARIN SODIUM [Concomitant]
     Dosage: 5 MG, UNK
  9. CENTRUM SILVER [Concomitant]
  10. CALCIUM COMPLEX /02226301/ [Concomitant]
  11. VITAMIN D3 [Concomitant]
     Dosage: 2200 IU, UNK

REACTIONS (1)
  - BREAST CANCER IN SITU [None]
